FAERS Safety Report 25258534 (Version 3)
Quarter: 2025Q2

REPORT INFORMATION
  Report Type: Spontaneous
  Country: CN (occurrence: CN)
  Receive Date: 20250501
  Receipt Date: 20250630
  Transmission Date: 20250716
  Serious: Yes (Death, Other)
  Sender: DAIICHI
  Company Number: CN-DSJP-DS-2025-138620-CN

PATIENT
  Age: 73 Year
  Sex: Male

DRUGS (3)
  1. ENHERTU [Suspect]
     Active Substance: FAM-TRASTUZUMAB DERUXTECAN-NXKI
     Indication: HER2 mutant non-small cell lung cancer
     Route: 065
     Dates: start: 20250207
  2. ENHERTU [Suspect]
     Active Substance: FAM-TRASTUZUMAB DERUXTECAN-NXKI
     Route: 065
  3. ENHERTU [Suspect]
     Active Substance: FAM-TRASTUZUMAB DERUXTECAN-NXKI
     Route: 065

REACTIONS (4)
  - Death [Fatal]
  - Hepatic encephalopathy [Not Recovered/Not Resolved]
  - Transaminases increased [Not Recovered/Not Resolved]
  - Jaundice [Not Recovered/Not Resolved]
